FAERS Safety Report 6428521-0 (Version None)
Quarter: 2009Q4

REPORT INFORMATION
  Report Type: 
  Country: None (occurrence: None)
  Receive Date: 20091105
  Receipt Date: 20091029
  Transmission Date: 20100525
  Serious: Yes (Other)
  Sender: FDA-Public Use
  Company Number: JP-AVENTIS-200912857JP

PATIENT

DRUGS (1)
  1. LANTUS [Suspect]
     Route: 058

REACTIONS (1)
  - DEMENTIA [None]
